FAERS Safety Report 8803283 (Version 1)
Quarter: 2012Q4

REPORT INFORMATION
  Report Type: 
  Country: JP (occurrence: JP)
  Receive Date: 20120924
  Receipt Date: 20120924
  Transmission Date: 20130627
  Serious: Yes (Disabling, Other)
  Sender: FDA-Public Use
  Company Number: JP-BAUSCH-BL-2012-001019

PATIENT
  Age: 49 Year
  Sex: Female

DRUGS (3)
  1. GANCICLOVIR SODIUM [Suspect]
     Indication: CYTOMEGALOVIRUS CHORIORETINITIS
  2. GANCICLOVIR [Suspect]
     Indication: CYTOMEGALOVIRUS CHORIORETINITIS
  3. FOSCARNET [Suspect]
     Indication: CYTOMEGALOVIRUS CHORIORETINITIS

REACTIONS (12)
  - Retinal detachment [Not Recovered/Not Resolved]
  - Blindness unilateral [Not Recovered/Not Resolved]
  - Retinal detachment [Recovered/Resolved]
  - Cytomegalovirus chorioretinitis [Not Recovered/Not Resolved]
  - Atrophy of globe [Unknown]
  - Retinal haemorrhage [None]
  - Subcutaneous abscess [None]
  - CD4 lymphocytes decreased [None]
  - Eyelid oedema [None]
  - Scotoma [None]
  - Mycobacterium avium complex infection [None]
  - Hyperpyrexia [None]
